FAERS Safety Report 15334688 (Version 1)
Quarter: 2018Q4

REPORT INFORMATION
  Report Type: Spontaneous
  Country: JP (occurrence: JP)
  Receive Date: 20180830
  Receipt Date: 20180830
  Transmission Date: 20190204
  Serious: Yes (Other)
  Sender: FDA-Public Use
  Company Number: JP-SA-2018SA230530

PATIENT
  Sex: Male

DRUGS (4)
  1. LIVALO [Concomitant]
     Active Substance: PITAVASTATIN CALCIUM
     Indication: LOW DENSITY LIPOPROTEIN INCREASED
     Dosage: UNK
     Route: 048
  2. BAYASPIRIN [Concomitant]
     Active Substance: ASPIRIN
     Indication: PRODUCT USED FOR UNKNOWN INDICATION
     Dosage: UNK
     Route: 048
  3. PREFILLED PEN FOR ALIROCUMAB INJ 75MG [Concomitant]
     Indication: LOW DENSITY LIPOPROTEIN INCREASED
     Dosage: 6 INJECTIONS, TWICE A MONTH
     Route: 058
     Dates: start: 201804
  4. PRALUENT [Suspect]
     Active Substance: ALIROCUMAB
     Indication: LOW DENSITY LIPOPROTEIN INCREASED
     Dosage: 6 INJECTIONS, TWICE A MONTH
     Route: 058
     Dates: start: 201804

REACTIONS (3)
  - Cataract [Unknown]
  - Haemorrhage subcutaneous [Unknown]
  - Skin discolouration [Unknown]
